FAERS Safety Report 6423627-4 (Version None)
Quarter: 2009Q4

REPORT INFORMATION
  Report Type: 
  Country: None (occurrence: None)
  Receive Date: 20091028
  Receipt Date: 20091026
  Transmission Date: 20100525
  Serious: Yes (Hospitalization)
  Sender: FDA-Public Use
  Company Number: GXKR2009DE11672

PATIENT
  Age: 80 Year
  Sex: Female
  Weight: 100 kg

DRUGS (6)
  1. CARBAMAZEPINE [Suspect]
     Dosage: 200 MG, QD, ORAL
     Route: 048
     Dates: end: 20090721
  2. ENALAPRIL MALEATE AND HYDROCHLOROTHIAZIDE [Suspect]
     Indication: HYPERTENSION
     Dosage: 1 DF, QD, ORAL
     Route: 048
     Dates: end: 20090721
  3. TORSEMIDE [Suspect]
     Indication: HYPERTENSION
     Dosage: 2.5 MG, QD, ORAL
     Route: 048
  4. METOPROLOL (METOPROLOL) [Concomitant]
  5. NIFEDIPINE [Concomitant]
  6. OMEPRAZOLE [Concomitant]

REACTIONS (1)
  - INAPPROPRIATE ANTIDIURETIC HORMONE SECRETION [None]
